FAERS Safety Report 21964684 (Version 1)
Quarter: 2023Q1

REPORT INFORMATION
  Report Type: Spontaneous
  Country: US (occurrence: US)
  Receive Date: 20230207
  Receipt Date: 20230207
  Transmission Date: 20230418
  Serious: No
  Sender: FDA-Public Use
  Company Number: US-PURDUE-USA-2023-0299533

PATIENT
  Sex: Female
  Weight: 122.47 kg

DRUGS (2)
  1. BUTRANS [Suspect]
     Active Substance: BUPRENORPHINE
     Indication: Pain management
     Dosage: 15 MCG/HR, WEEKLY
     Route: 062
  2. HYDROCODONE [Suspect]
     Active Substance: HYDROCODONE
     Indication: Pain management
     Dosage: UNK
     Route: 065

REACTIONS (3)
  - Application site erythema [Not Recovered/Not Resolved]
  - Application site pruritus [Not Recovered/Not Resolved]
  - Application site warmth [Not Recovered/Not Resolved]
